FAERS Safety Report 7992624-X (Version None)
Quarter: 2011Q4

REPORT INFORMATION
  Report Type: 
  Country: None (occurrence: None)
  Receive Date: 20111219
  Receipt Date: 20101217
  Transmission Date: 20120403
  Serious: No
  Sender: FDA-Public Use
  Company Number: US-ASTRAZENECA-2010SE59704

PATIENT
  Age: 71 Year
  Sex: Female

DRUGS (8)
  1. CRESTOR [Suspect]
     Indication: HYPERCHOLESTEROLAEMIA
     Route: 048
     Dates: start: 20100101, end: 20100101
  2. COUMADIN [Concomitant]
  3. TAMBOCOR [Concomitant]
  4. MULTI-VITAMINS [Concomitant]
  5. VITAMIN B COMPLEX CAP [Concomitant]
  6. VITAMIN C [Concomitant]
  7. CRESTOR [Suspect]
     Route: 048
     Dates: start: 20101201
  8. ATENOLOL [Concomitant]

REACTIONS (2)
  - GLAUCOMA [None]
  - ARTHRALGIA [None]
